FAERS Safety Report 14933368 (Version 1)
Quarter: 2018Q2

REPORT INFORMATION
  Report Type: Spontaneous
  Country: US (occurrence: US)
  Receive Date: 20180524
  Receipt Date: 20180524
  Transmission Date: 20180711
  Serious: No
  Sender: FDA-Public Use
  Company Number: US-BAYER-2018-091498

PATIENT
  Age: 48 Year
  Sex: Male
  Weight: 103.99 kg

DRUGS (11)
  1. ENTRESTO [Concomitant]
     Active Substance: SACUBITRIL\VALSARTAN
  2. APIXABAN [Concomitant]
     Active Substance: APIXABAN
  3. EXENATIDE. [Concomitant]
     Active Substance: EXENATIDE
  4. SPIRONOLACTONE. [Concomitant]
     Active Substance: SPIRONOLACTONE
  5. MIRALAX [Suspect]
     Active Substance: POLYETHYLENE GLYCOL 3350
     Indication: COLONOSCOPY
     Dosage: UNK
     Route: 048
     Dates: start: 20180509
  6. PROTONIX [Concomitant]
     Active Substance: PANTOPRAZOLE SODIUM
  7. METOPROLOL. [Concomitant]
     Active Substance: METOPROLOL
  8. AMIODARONE [Concomitant]
     Active Substance: AMIODARONE
  9. FENOFIBRATE. [Concomitant]
     Active Substance: FENOFIBRATE
  10. BISACODYL. [Concomitant]
     Active Substance: BISACODYL
     Dosage: 4 DF, UNK
  11. PLAVIX [Concomitant]
     Active Substance: CLOPIDOGREL BISULFATE

REACTIONS (6)
  - Nausea [Not Recovered/Not Resolved]
  - Drug administration error [Unknown]
  - Abdominal discomfort [Not Recovered/Not Resolved]
  - Off label use [Unknown]
  - Drug ineffective [Not Recovered/Not Resolved]
  - Product use in unapproved indication [Unknown]

NARRATIVE: CASE EVENT DATE: 20180509
